FAERS Safety Report 17676474 (Version 1)
Quarter: 2020Q2

REPORT INFORMATION
  Report Type: Spontaneous
  Country: IT (occurrence: IT)
  Receive Date: 20200416
  Receipt Date: 20200416
  Transmission Date: 20200714
  Serious: Yes (Other)
  Sender: FDA-Public Use
  Company Number: IT-TEVA-2020-IT-1222512

PATIENT
  Age: 82 Year
  Sex: Male

DRUGS (4)
  1. FLUOROURACIL. [Suspect]
     Active Substance: FLUOROURACIL
     Indication: OESOPHAGEAL ADENOCARCINOMA
     Dosage: MODIFIED DOSE
     Route: 065
     Dates: start: 201512, end: 201605
  2. FOLINIC ACID [Suspect]
     Active Substance: LEUCOVORIN
     Dosage: MODIFIED DOSE
     Route: 065
     Dates: start: 201512, end: 201605
  3. OXALIPLATIN. [Suspect]
     Active Substance: OXALIPLATIN
     Indication: OESOPHAGEAL ADENOCARCINOMA
     Dosage: MODIFIED DOSE
     Route: 065
     Dates: start: 201512, end: 201605
  4. NIVOLUMAB [Suspect]
     Active Substance: NIVOLUMAB
     Indication: OESOPHAGEAL ADENOCARCINOMA
     Route: 065
     Dates: start: 20171016

REACTIONS (2)
  - Off label use [Unknown]
  - Haematotoxicity [Unknown]

NARRATIVE: CASE EVENT DATE: 20171016
